FAERS Safety Report 16941242 (Version 1)
Quarter: 2019Q4

REPORT INFORMATION
  Report Type: Spontaneous
  Country: US (occurrence: US)
  Receive Date: 20190829
  Receipt Date: 20190829
  Transmission Date: 20200122
  Serious: No
  Sender: FDA-Public Use
  Company Number: None

PATIENT
  Age: 53 Year
  Sex: Female

DRUGS (1)
  1. ENTYVIO [Suspect]
     Active Substance: VEDOLIZUMAB
     Indication: CROHN^S DISEASE
     Dosage: ?          OTHER FREQUENCY:EVERY 8 WEEKS;OTHER ROUTE:IV?
     Route: 042
     Dates: start: 20190110

REACTIONS (3)
  - Injury associated with device [None]
  - Product contamination [None]
  - Needle issue [None]

NARRATIVE: CASE EVENT DATE: 20190827
